FAERS Safety Report 4304165-1 (Version None)
Quarter: 2004Q1

REPORT INFORMATION
  Report Type: 
  Country: None (occurrence: None)
  Receive Date: 20040224
  Receipt Date: 20040126
  Transmission Date: 20041129
  Serious: Yes (Hospitalization)
  Sender: FDA-Public Use
  Company Number: RB-439-2004

PATIENT
  Age: 27 Year
  Sex: Female

DRUGS (1)
  1. BUPRENORPHINE HYDROCHLORIDE [Suspect]
     Indication: DETOXIFICATION
     Dosage: 12 MG, SL
     Route: 060
     Dates: start: 20030908, end: 20031124

REACTIONS (2)
  - CONVULSION [None]
  - INJURY [None]
